FAERS Safety Report 7420368-1 (Version None)
Quarter: 2011Q2

REPORT INFORMATION
  Report Type: 
  Country: None (occurrence: None)
  Receive Date: 20110406
  Receipt Date: 20110329
  Transmission Date: 20111010
  Serious: Yes (Hospitalization)
  Sender: FDA-Public Use
  Company Number: 2010EN000356

PATIENT
  Sex: Female
  Weight: 44.6 kg

DRUGS (27)
  1. DAUNORUBICIN HCL [Suspect]
     Indication: ACUTE LYMPHOCYTIC LEUKAEMIA
     Dosage: 102 MG; QW; IV
     Route: 042
     Dates: start: 20101112, end: 20101126
  2. METHOTREXATE [Suspect]
     Indication: ACUTE LYMPHOCYTIC LEUKAEMIA
     Dosage: 15 MG; QW; INTH, 60 MG; QW; INTH
     Route: 037
     Dates: start: 20101119, end: 20101119
  3. METHOTREXATE [Suspect]
     Indication: ACUTE LYMPHOCYTIC LEUKAEMIA
     Dosage: 15 MG; QW; INTH, 60 MG; QW; INTH
     Route: 037
     Dates: start: 20101220, end: 20110110
  4. DIPHENHYDRAMINE [Concomitant]
  5. PREDNISONE [Concomitant]
  6. MERCAPTOPURINE [Suspect]
     Indication: ACUTE LYMPHOCYTIC LEUKAEMIA
     Dosage: 1150 MG; QD; PO, 2300 MG; PO
     Route: 048
     Dates: end: 20110213
  7. MERCAPTOPURINE [Suspect]
     Indication: ACUTE LYMPHOCYTIC LEUKAEMIA
     Dosage: 1150 MG; QD; PO, 2300 MG; PO
     Route: 048
     Dates: start: 20101220, end: 20110102
  8. COLACE [Concomitant]
  9. RANITIDINE [Concomitant]
  10. ZOFRAN [Concomitant]
  11. LORAZEPAM [Concomitant]
  12. EZN-2285 (SC-PEG E. COLI L-ASPARAGINASE) [Suspect]
     Indication: ACUTE LYMPHOCYTIC LEUKAEMIA
     Dosage: 2877 IU; X1; IV
     Route: 042
     Dates: start: 20101115, end: 20101115
  13. ALUMINUM HYDROXINE GEL [Concomitant]
  14. CEFEPIME [Concomitant]
  15. METOCLOPRAMIDE [Concomitant]
  16. CYTARABINE [Concomitant]
  17. VINCRISTINE [Suspect]
     Indication: ACUTE LYMPHOCYTIC LEUKAEMIA
     Dosage: 6 MG; QW; IV, 4 MG; QW; IV
     Route: 042
     Dates: start: 20101112, end: 20101126
  18. VINCRISTINE [Suspect]
     Indication: ACUTE LYMPHOCYTIC LEUKAEMIA
     Dosage: 6 MG; QW; IV, 4 MG; QW; IV
     Route: 042
     Dates: start: 20110103, end: 20110110
  19. MIRALAX [Concomitant]
  20. CYCLOPHOSPHAMIDE [Suspect]
     Indication: ACUTE LYMPHOCYTIC LEUKAEMIA
     Dosage: 1350 MG; X1; IV, 1320 MG; X1; IV
     Route: 042
     Dates: start: 20110131, end: 20110131
  21. CYCLOPHOSPHAMIDE [Suspect]
     Indication: ACUTE LYMPHOCYTIC LEUKAEMIA
     Dosage: 1350 MG; X1; IV, 1320 MG; X1; IV
     Route: 042
     Dates: start: 20101220, end: 20101220
  22. BACTRIM [Concomitant]
  23. MORPHINE [Concomitant]
  24. ONCASPAR [Suspect]
     Indication: ACUTE LYMPHOCYTIC LEUKAEMIA
     Dosage: 3375 IU; X1; IV, 3300 IU; X1; IV
     Route: 042
     Dates: start: 20110103, end: 20110103
  25. ONCASPAR [Suspect]
     Indication: ACUTE LYMPHOCYTIC LEUKAEMIA
     Dosage: 3375 IU; X1; IV, 3300 IU; X1; IV
     Route: 042
     Dates: start: 20110214, end: 20110214
  26. CYTARABINE [Concomitant]
  27. CHLORHEXIDINE GLUCONATE [Concomitant]

REACTIONS (10)
  - PROTEINURIA [None]
  - POST LUMBAR PUNCTURE SYNDROME [None]
  - HYPERTENSION [None]
  - NEUTROPENIA [None]
  - RHINORRHOEA [None]
  - PYREXIA [None]
  - NAUSEA [None]
  - PROCEDURAL PAIN [None]
  - VISION BLURRED [None]
  - DIZZINESS [None]
